FAERS Safety Report 10164293 (Version 2)
Quarter: 2014Q2

REPORT INFORMATION
  Report Type: Spontaneous
  Country: US (occurrence: US)
  Receive Date: 20140510
  Receipt Date: 20140510
  Transmission Date: 20141212
  Serious: No
  Sender: FDA-Public Use
  Company Number: US-BRISTOL-MYERS SQUIBB COMPANY-19486935

PATIENT
  Age: 61 Year
  Sex: Female
  Weight: 102.04 kg

DRUGS (8)
  1. BYDUREON [Suspect]
     Indication: TYPE 2 DIABETES MELLITUS
     Dosage: NO OF DOSE:6?RECENT DOSE ON 26SEP2013
     Route: 058
     Dates: start: 20130808
  2. METFORMIN [Concomitant]
  3. LANTUS [Concomitant]
  4. NOVOLOG [Concomitant]
  5. CRESTOR [Concomitant]
     Indication: BLOOD CHOLESTEROL
  6. BENICAR [Concomitant]
  7. ENALAPRIL [Concomitant]
  8. ATENOLOL [Concomitant]

REACTIONS (6)
  - Injection site haemorrhage [Recovered/Resolved]
  - Injection site extravasation [Recovered/Resolved]
  - Nausea [Recovered/Resolved]
  - Weight decreased [Recovered/Resolved]
  - Decreased appetite [Unknown]
  - Underdose [Unknown]
